FAERS Safety Report 6571966-9 (Version None)
Quarter: 2010Q1

REPORT INFORMATION
  Report Type: 
  Country: None (occurrence: None)
  Receive Date: 20100205
  Receipt Date: 20100125
  Transmission Date: 20100710
  Serious: Yes (Hospitalization)
  Sender: FDA-Public Use
  Company Number: JP-PFIZER INC-2010010357

PATIENT
  Age: 26 Year
  Sex: Male

DRUGS (1)
  1. PREDNISOLONE AND PREDNISOLONE STEAGLATE [Suspect]
     Indication: IGA NEPHROPATHY

REACTIONS (2)
  - INTRACARDIAC THROMBUS [None]
  - TRICUSPID VALVE INCOMPETENCE [None]
